FAERS Safety Report 4839396-5 (Version None)
Quarter: 2005Q4

REPORT INFORMATION
  Report Type: 
  Country: None (occurrence: None)
  Receive Date: 20051129
  Receipt Date: 20050309
  Transmission Date: 20060501
  Serious: Yes (Other)
  Sender: FDA-Public Use
  Company Number: US-GLAXOSMITHKLINE-A0549058A

PATIENT
  Age: 48 Year
  Sex: Male

DRUGS (7)
  1. WELLBUTRIN [Suspect]
     Dosage: 150MG TWICE PER DAY
     Route: 048
     Dates: start: 20030101, end: 20030101
  2. PLAVIX [Concomitant]
  3. ZOCOR [Concomitant]
  4. PRINIVIL [Concomitant]
  5. TRICOR [Concomitant]
  6. LASIX [Concomitant]
  7. ALDACTONE [Concomitant]

REACTIONS (1)
  - CONVULSION [None]
